FAERS Safety Report 7172626-6 (Version None)
Quarter: 2010Q4

REPORT INFORMATION
  Report Type: 
  Country: None (occurrence: None)
  Receive Date: 20101217
  Receipt Date: 20100211
  Transmission Date: 20110411
  Serious: No
  Sender: FDA-Public Use
  Company Number: US-AMGEN-KDL392105

PATIENT

DRUGS (11)
  1. ENBREL [Suspect]
     Indication: PRODUCT USED FOR UNKNOWN INDICATION
     Dosage: 25 MG, 2 TIMES/WK
  2. ROPINIROLE HYDROCHLORIDE [Concomitant]
     Dosage: .25 MG, UNK
     Route: 048
  3. PAROXETINE HYDROCHLORIDE [Concomitant]
     Dosage: 20 MG, UNK
     Route: 048
  4. MELOXICAM [Concomitant]
     Dosage: 7.5 MG, UNK
     Route: 048
  5. OMEPRAZOLE [Concomitant]
     Dosage: 10 MG, UNK
     Route: 048
  6. VALACYCLOVIR HYDROCHLORIDE [Concomitant]
     Dosage: 500 MG, UNK
     Route: 048
  7. MILNACIPRAN [Concomitant]
     Dosage: 12.5 MG, UNK
     Route: 048
  8. TIZANIDINE HYDROCHLORIDE [Concomitant]
     Dosage: 2 MG, UNK
     Route: 048
  9. CALCIUM WITH VITAMIN D [Concomitant]
     Dosage: UNK UNK, UNK
     Route: 048
  10. MULTI-VITAMINS [Concomitant]
     Dosage: UNK UNK, UNK
     Route: 048
  11. HYDROCODONE [Concomitant]
     Dosage: UNK UNK, UNK
     Route: 048

REACTIONS (1)
  - INJECTION SITE PAIN [None]
